FAERS Safety Report 7825031-0 (Version None)
Quarter: 2011Q4

REPORT INFORMATION
  Report Type: 
  Country: None (occurrence: None)
  Receive Date: 20111019
  Receipt Date: 20110401
  Transmission Date: 20120403
  Serious: No
  Sender: FDA-Public Use
  Company Number: US-BRISTOL-MYERS SQUIBB COMPANY-15649866

PATIENT
  Age: 85 Year
  Sex: Male
  Weight: 91 kg

DRUGS (3)
  1. VITAMIN TAB [Concomitant]
  2. AVALIDE [Suspect]
     Dosage: 1DF= INITIAL DOSE 300/12.5MG DAILY DECREASED TO 150/12.5MG(6-9 MONTHS AGO)LOT-9L2011A,EXP DT-NOV12
     Dates: start: 19970101, end: 20110101
  3. CRESTOR [Concomitant]
     Indication: BLOOD CHOLESTEROL INCREASED

REACTIONS (3)
  - DIZZINESS [None]
  - HEADACHE [None]
  - COUGH [None]
